FAERS Safety Report 13582213 (Version 1)
Quarter: 2017Q2

REPORT INFORMATION
  Report Type: Spontaneous
  Country: IT (occurrence: IT)
  Receive Date: 20170525
  Receipt Date: 20170525
  Transmission Date: 20170830
  Serious: Yes (Life-Threatening, Other)
  Sender: FDA-Public Use
  Company Number: IT-PFIZER INC-2017230407

PATIENT
  Age: 4 Year
  Sex: Male

DRUGS (13)
  1. ANTRA /00661201/ [Concomitant]
     Active Substance: OMEPRAZOLE
  2. KETAMINE HCL [Concomitant]
     Active Substance: KETAMINE HYDROCHLORIDE
  3. SANDIMMUN [Suspect]
     Active Substance: CYCLOSPORINE
     Dosage: 140 MG, DAILY
     Route: 041
     Dates: start: 20170414, end: 20170420
  4. GARDENALE /00023201/ [Concomitant]
     Active Substance: PHENOBARBITAL
  5. PARACETAMOL [Concomitant]
     Active Substance: ACETAMINOPHEN
  6. KEPPRA [Concomitant]
     Active Substance: LEVETIRACETAM
  7. DELTACORTENE [Suspect]
     Active Substance: PREDNISONE
     Dosage: 10 G, DAILY
     Route: 048
     Dates: start: 20170316, end: 20170330
  8. ONKOTRONE [Suspect]
     Active Substance: MITOXANTRONE HYDROCHLORIDE
     Dosage: 10 MG, CYCLIC
     Route: 041
     Dates: start: 20170421, end: 20170428
  9. SOLU-MEDROL [Suspect]
     Active Substance: METHYLPREDNISOLONE SODIUM SUCCINATE
     Dosage: 15 MG/KG, DAILY
     Route: 041
     Dates: start: 20170330
  10. ETOPOSIDE TEVA [Suspect]
     Active Substance: ETOPOSIDE
     Dosage: 150 MG, CYCLIC
     Route: 041
     Dates: start: 20170505, end: 20170512
  11. METHOTREXATE TEVA /00113801/ [Suspect]
     Active Substance: METHOTREXATE
     Dosage: 12 MG, CYCLIC
     Dates: start: 20170505, end: 20170512
  12. MIDAZOLAM [Concomitant]
     Active Substance: MIDAZOLAM HYDROCHLORIDE
  13. DEPAKIN [Concomitant]
     Active Substance: VALPROATE SODIUM

REACTIONS (2)
  - Septic shock [Not Recovered/Not Resolved]
  - Leukopenia [Not Recovered/Not Resolved]

NARRATIVE: CASE EVENT DATE: 20170519
